FAERS Safety Report 7884873-6 (Version None)
Quarter: 2011Q4

REPORT INFORMATION
  Report Type: 
  Country: None (occurrence: None)
  Receive Date: 20111102
  Receipt Date: 20111026
  Transmission Date: 20120403
  Serious: Yes (Hospitalization, Other)
  Sender: FDA-Public Use
  Company Number: PHHY2011JP95677

PATIENT
  Sex: Female
  Weight: 62 kg

DRUGS (10)
  1. PROMAC [Concomitant]
     Indication: PROPHYLAXIS
     Dosage: 150 MG, UNK
     Route: 048
     Dates: start: 20110630
  2. OLMESARTAN MEDOXOMIL [Concomitant]
     Dosage: 20 MG, UNK
     Route: 048
  3. LACTEC [Concomitant]
     Dosage: 1500 ML, UNK
     Route: 041
     Dates: start: 20110603, end: 20110607
  4. AFINITOR [Suspect]
     Dosage: 5 MG, DAILY
     Route: 048
     Dates: start: 20110419
  5. AMARYL [Concomitant]
     Dosage: 2 MG, UNK
     Route: 048
  6. NORVASC [Concomitant]
     Dosage: 5 MG, UNK
     Route: 048
  7. APIDRA [Concomitant]
     Dosage: UNK
     Dates: start: 20110526
  8. LEVOTHYROXINE SODIUM [Concomitant]
     Dosage: 50 UG, UNK
     Route: 048
     Dates: start: 20110113
  9. AFINITOR [Suspect]
     Indication: METASTATIC RENAL CELL CARCINOMA
     Dosage: 10 MG,DAILY
     Route: 048
     Dates: start: 20110409
  10. METFORMIN HCL [Concomitant]
     Dosage: 500 MG, UNK
     Route: 048

REACTIONS (12)
  - PYREXIA [None]
  - ANAEMIA [None]
  - DECREASED APPETITE [None]
  - HYPOXIA [None]
  - DYSPNOEA [None]
  - GAMMA-GLUTAMYLTRANSFERASE INCREASED [None]
  - NEOPLASM MALIGNANT [None]
  - GLUCOSE TOLERANCE INCREASED [None]
  - COUGH [None]
  - PNEUMONITIS [None]
  - BLOOD ALKALINE PHOSPHATASE INCREASED [None]
  - NEOPLASM PROGRESSION [None]
